FAERS Safety Report 6121904-8 (Version None)
Quarter: 2009Q1

REPORT INFORMATION
  Report Type: 
  Country: None (occurrence: None)
  Receive Date: 20090317
  Receipt Date: 20090306
  Transmission Date: 20090719
  Serious: Yes (Hospitalization)
  Sender: FDA-Public Use
  Company Number: CZ-PFIZER INC-2009180938

PATIENT

DRUGS (3)
  1. IRINOTECAN HCL [Suspect]
     Indication: COLORECTAL CANCER METASTATIC
     Dosage: 350 MG/M2, EVERY 3 WEEKS
  2. CETUXIMAB [Suspect]
     Indication: COLORECTAL CANCER METASTATIC
     Dosage: 400 MG/M2, ON THE FIRST DAY
  3. CETUXIMAB [Suspect]
     Dosage: 250 MG/M2, WEEKLY

REACTIONS (7)
  - ASTHENIA [None]
  - DEHYDRATION [None]
  - DIARRHOEA [None]
  - ILEUS [None]
  - NAUSEA [None]
  - PERFORMANCE STATUS DECREASED [None]
  - SEBORRHOEIC DERMATITIS [None]
